FAERS Safety Report 18470827 (Version 3)
Quarter: 2020Q4

REPORT INFORMATION
  Report Type: Other
  Country: US (occurrence: US)
  Receive Date: 20201106
  Receipt Date: 20201221
  Transmission Date: 20210114
  Serious: Yes (Other)
  Sender: FDA-Public Use
  Company Number: US-GLENMARK PHARMACEUTICALS-2020GMK050199

PATIENT

DRUGS (12)
  1. BIOFLEX [ACECLOFENAC] [Concomitant]
     Indication: ARTHROPATHY
     Dosage: UNK
     Route: 065
  2. OLMESARTAN MEDOXOMIL TABLETS, 20MG [Suspect]
     Active Substance: OLMESARTAN MEDOXOMIL
     Indication: HYPERTENSION
     Dosage: 20 MILLIGRAM, OD (DURATION: AT LEAST 2 OR 3 DAYS)
     Route: 048
     Dates: start: 202003, end: 20200326
  3. POTASSIUM CHLORIDE. [Concomitant]
     Active Substance: POTASSIUM CHLORIDE
     Indication: HYPERTENSION
     Dosage: 3 DOSAGE FORM, QD
     Route: 065
  4. SYNTHROID [Concomitant]
     Active Substance: LEVOTHYROXINE SODIUM
     Indication: THYROID HORMONES DECREASED
     Dosage: UNK UNK, OD
     Route: 065
  5. EDECRIN [ETACRYNIC ACID] [Concomitant]
     Indication: HYPERTENSION
     Dosage: UNK, BID (SINCE 10 TO 15 YEARS BEFORE REPORT)
     Route: 065
  6. EDECRIN [ETACRYNIC ACID] [Concomitant]
     Indication: DIURETIC THERAPY
  7. MAGNESIUM [Concomitant]
     Active Substance: MAGNESIUM
     Indication: MINERAL SUPPLEMENTATION
     Dosage: 1 DOSAGE FORM, QD
     Route: 065
  8. VITAMIN D3 [Interacting]
     Active Substance: CHOLECALCIFEROL
     Indication: PRODUCT USED FOR UNKNOWN INDICATION
     Dosage: 1 DOSAGE FORM, QD (STRENGTH: 2000 UNITS)
     Route: 065
  9. MULTIVITAMINS [VITAMINS NOS] [Concomitant]
     Active Substance: VITAMINS
     Indication: PRODUCT USED FOR UNKNOWN INDICATION
     Dosage: 1 DOSAGE FORM, QD
     Route: 065
  10. SIMVASTATIN. [Concomitant]
     Active Substance: SIMVASTATIN
     Indication: BLOOD CHOLESTEROL INCREASED
     Dosage: UNK, OD
     Route: 065
  11. AREDS [Concomitant]
     Active Substance: MINERALS\VITAMINS
     Indication: MACULAR DEGENERATION
     Dosage: 2 DOSAGE FORM, QD [AREDS 2 (OTC)]
     Route: 065
  12. BABY ASPIRIN [Concomitant]
     Active Substance: ASPIRIN
     Indication: PRODUCT USED FOR UNKNOWN INDICATION
     Dosage: 1 DOSAGE FORM, QD
     Route: 065

REACTIONS (13)
  - Inflammation [Recovered/Resolved]
  - Speech disorder [Recovered/Resolved]
  - Chest pain [Recovered/Resolved]
  - Bronchitis [Recovered/Resolved]
  - Blood pressure fluctuation [Recovered/Resolved]
  - Pyrexia [Recovered/Resolved]
  - Body temperature increased [Recovered/Resolved]
  - Cough [Recovered/Resolved]
  - Dysphonia [Recovered/Resolved]
  - Allergic reaction to excipient [Recovered/Resolved]
  - Product substitution issue [Unknown]
  - Blood pressure increased [Recovered/Resolved]
  - Drug ineffective [Unknown]

NARRATIVE: CASE EVENT DATE: 2020
